FAERS Safety Report 6593864-7 (Version None)
Quarter: 2010Q1

REPORT INFORMATION
  Report Type: 
  Country: None (occurrence: None)
  Receive Date: 20100222
  Receipt Date: 20100209
  Transmission Date: 20100710
  Serious: No
  Sender: FDA-Public Use
  Company Number: US-ELI_LILLY_AND_COMPANY-US200911005362

PATIENT
  Age: 45 Year
  Sex: Female

DRUGS (2)
  1. CYMBALTA [Suspect]
     Indication: MAJOR DEPRESSION
     Dosage: 1 D/F, UNK
     Dates: start: 20070101, end: 20091111
  2. CYMBALTA [Suspect]
     Dosage: 90 MG, DAILY (1/D)
     Dates: start: 20091111

REACTIONS (1)
  - GAMMA-GLUTAMYLTRANSFERASE INCREASED [None]
